FAERS Safety Report 6154794-8 (Version None)
Quarter: 2009Q2

REPORT INFORMATION
  Report Type: 
  Country: None (occurrence: None)
  Receive Date: 20090414
  Receipt Date: 20090406
  Transmission Date: 20091009
  Serious: Yes (Hospitalization, Other)
  Sender: FDA-Public Use
  Company Number: PHHY2009BR13262

PATIENT
  Age: 10 Year
  Sex: Female
  Weight: 35 kg

DRUGS (2)
  1. TEGRETOL [Suspect]
     Dosage: 40MG PER KG BODY MASS
     Route: 048
     Dates: start: 20071201, end: 20090327
  2. YELLOW FEVER VACCINE [Concomitant]

REACTIONS (5)
  - ALANINE AMINOTRANSFERASE INCREASED [None]
  - ASPARTATE AMINOTRANSFERASE INCREASED [None]
  - HEPATITIS A [None]
  - VOMITING [None]
  - YELLOW FEVER [None]
